FAERS Safety Report 6601816-3 (Version None)
Quarter: 2010Q1

REPORT INFORMATION
  Report Type: 
  Country: None (occurrence: None)
  Receive Date: 20100218
  Receipt Date: 20100215
  Transmission Date: 20100710
  Serious: Yes (Life-Threatening, Hospitalization)
  Sender: FDA-Public Use
  Company Number: ALL1-2010-00786

PATIENT
  Age: 62 Year
  Sex: Female

DRUGS (2)
  1. FOSRENOL [Suspect]
     Indication: HYPERPHOSPHATAEMIA
     Dosage: MG, ORAL
     Route: 048
     Dates: start: 20070215
  2. CRESTOR [Concomitant]

REACTIONS (5)
  - CARDIAC ARREST [None]
  - FALL [None]
  - GAIT DISTURBANCE [None]
  - LOWER LIMB FRACTURE [None]
  - PATELLA FRACTURE [None]
